FAERS Safety Report 5225753-4 (Version None)
Quarter: 2007Q1

REPORT INFORMATION
  Report Type: 
  Country: None (occurrence: None)
  Receive Date: 20070131
  Receipt Date: 20070131
  Transmission Date: 20070707
  Serious: Yes (Death)
  Sender: FDA-Public Use
  Company Number: None

PATIENT
  Age: 76 Year
  Sex: Male
  Weight: 81.6475 kg

DRUGS (2)
  1. MULTIHANCE [Suspect]
     Indication: HYPOAESTHESIA ORAL
     Dosage: 17CC IV
     Route: 042
     Dates: start: 20060621, end: 20060621
  2. MULTIHANCE [Suspect]
     Indication: MULTIPLE MYELOMA
     Dosage: 17CC IV
     Route: 042
     Dates: start: 20060621, end: 20060621

REACTIONS (1)
  - RENAL FAILURE [None]
